FAERS Safety Report 4760969-2 (Version None)
Quarter: 2005Q3

REPORT INFORMATION
  Report Type: 
  Country: None (occurrence: None)
  Receive Date: 20050901
  Receipt Date: 20050819
  Transmission Date: 20060218
  Serious: Yes (Hospitalization)
  Sender: FDA-Public Use
  Company Number: 194570

PATIENT
  Age: 32 Year
  Sex: Female
  Weight: 87.0906 kg

DRUGS (2)
  1. AVONEX [Suspect]
     Indication: MULTIPLE SCLEROSIS
     Dosage: 30 UG QW IM
     Route: 030
     Dates: start: 20010105, end: 20030901
  2. AVONEX [Suspect]
     Indication: MULTIPLE SCLEROSIS
     Dosage: 30 UG QW IM
     Route: 030
     Dates: start: 20030901, end: 20040401

REACTIONS (9)
  - ANAEMIA [None]
  - BENIGN UTERINE NEOPLASM [None]
  - CONVULSION [None]
  - DEPRESSION [None]
  - DIABETES MELLITUS NON-INSULIN-DEPENDENT [None]
  - FATIGUE [None]
  - INFLUENZA [None]
  - POLYCYSTIC OVARIES [None]
  - UTERINE DISORDER [None]
